FAERS Safety Report 7539671-X (Version None)
Quarter: 2011Q2

REPORT INFORMATION
  Report Type: 
  Country: None (occurrence: None)
  Receive Date: 20110610
  Receipt Date: 20110531
  Transmission Date: 20111010
  Serious: Yes (Death, Other)
  Sender: FDA-Public Use
  Company Number: FR-MILLENNIUM PHARMACEUTICALS, INC.-2011-02317

PATIENT

DRUGS (14)
  1. PLAVIX [Concomitant]
  2. VELCADE [Suspect]
     Indication: MULTIPLE MYELOMA
     Dosage: UNK
     Route: 065
     Dates: start: 20080101, end: 20100401
  3. ALKERAN [Suspect]
     Indication: MULTIPLE MYELOMA
     Dosage: UNK
     Route: 065
     Dates: start: 20100801
  4. NEXIUM [Concomitant]
  5. GLYBURIDE [Concomitant]
  6. ACTRAPID                           /00030501/ [Concomitant]
  7. CRESTOR [Concomitant]
  8. REVLIMID [Suspect]
     Indication: MULTIPLE MYELOMA
     Dosage: 10 MG, UNK
     Route: 048
     Dates: start: 20100802
  9. DEXAMETHASONE [Concomitant]
  10. LANTUS [Concomitant]
  11. HYPERIUM                           /00939801/ [Concomitant]
  12. TARDYFERON                         /00023503/ [Concomitant]
  13. AMLODIPINE [Concomitant]
  14. HYTACAND [Concomitant]

REACTIONS (2)
  - ACUTE MYELOID LEUKAEMIA [None]
  - DYSPNOEA [None]
